FAERS Safety Report 9324696 (Version 1)
Quarter: 2013Q2

REPORT INFORMATION
  Report Type: Spontaneous
  Country: US (occurrence: US)
  Receive Date: 20130603
  Receipt Date: 20130603
  Transmission Date: 20140414
  Serious: Yes (Other)
  Sender: FDA-Public Use
  Company Number: US-BAYER-2013-067012

PATIENT
  Age: 40 Year
  Sex: Female

DRUGS (7)
  1. FINACEA [Suspect]
     Indication: ROSACEA
     Dosage: UNK UNK, OM
     Route: 061
     Dates: start: 2010
  2. DOXYCYCLINE [Suspect]
     Indication: ROSACEA
     Dosage: 40 MG, PRN
     Dates: start: 2010
  3. DOXYCYCLINE [Suspect]
     Indication: ROSACEA
     Dosage: 1 DF, UNK
     Dates: start: 201204
  4. DOXYCYCLINE [Suspect]
     Indication: ROSACEA
     Dosage: 1 DF, UNK
     Dates: start: 201204
  5. DOXYCYCLINE [Suspect]
     Indication: ROSACEA
     Dosage: 1 DF, UNK
     Dates: start: 20120502
  6. DOXYCYCLINE [Suspect]
     Indication: ROSACEA
     Dosage: 1 DF, UNK
     Dates: start: 20120603
  7. METROGEL [Suspect]
     Indication: ROSACEA
     Dosage: UNK UNK, HS
     Route: 061
     Dates: start: 2010

REACTIONS (3)
  - Abortion spontaneous [None]
  - Pregnancy test positive [None]
  - Exposure during pregnancy [None]
